FAERS Safety Report 7120535-0 (Version None)
Quarter: 2010Q4

REPORT INFORMATION
  Report Type: 
  Country: None (occurrence: None)
  Receive Date: 20101124
  Receipt Date: 20101115
  Transmission Date: 20110411
  Serious: Yes (Other)
  Sender: FDA-Public Use
  Company Number: US-PFIZER INC-2010148683

PATIENT
  Sex: Female
  Weight: 68.027 kg

DRUGS (17)
  1. LIPITOR [Suspect]
     Indication: BLOOD CHOLESTEROL INCREASED
     Dosage: 10 MG, UNK
     Dates: start: 20101110
  2. LIPITOR [Suspect]
     Dosage: UNK
     Dates: start: 19800101
  3. CRESTOR [Suspect]
     Indication: BLOOD CHOLESTEROL INCREASED
     Dosage: 40 MG, UNK
  4. VITAMIN D [Concomitant]
     Indication: VITAMIN D DECREASED
     Dosage: 1000 MG, UNK
     Route: 048
  5. CARDIZEM [Concomitant]
     Indication: BLOOD PRESSURE ABNORMAL
     Dosage: 125 MG, UNK
     Route: 048
  6. TRICOR [Concomitant]
     Dosage: 145 MG, UNK
     Route: 048
  7. TRICOR [Concomitant]
     Dosage: 48 MG, UNK
  8. METOPROLOL [Concomitant]
     Indication: BLOOD PRESSURE ABNORMAL
     Dosage: 100 MG, 1X/DAY IN AM
  9. METOPROLOL [Concomitant]
     Dosage: 50 MG, 2X/DAY, IN AFTERNOON AND AT NIGHT
  10. METFORMIN [Concomitant]
     Indication: DIABETES MELLITUS
     Dosage: 1000 MG, 2X/DAY
     Route: 048
     Dates: end: 20101101
  11. METFORMIN [Concomitant]
     Dosage: 1000 MG, 1X/DAY IN AM
     Dates: start: 20101101
  12. METFORMIN [Concomitant]
     Dosage: 500 MG, 1X/DAY
     Dates: start: 20101101
  13. NEXIUM [Concomitant]
     Indication: GASTROOESOPHAGEAL REFLUX DISEASE
     Dosage: 40 MG, UNK
     Route: 048
  14. CALCIUM [Concomitant]
     Indication: OSTEOPOROSIS
     Dosage: 1200 MG, 1X/DAY
  15. SYNTHROID [Concomitant]
     Indication: HYPERTHYROIDISM
     Dosage: 0.75 UG, UNK
  16. BIOTIN [Concomitant]
     Indication: ALOPECIA
     Dosage: 2000 MG, 1X/DAY
  17. XANAX [Concomitant]
     Indication: HEART RATE INCREASED
     Dosage: 0.125 MG, AS NEEDED
     Route: 048

REACTIONS (4)
  - GLOMERULAR FILTRATION RATE DECREASED [None]
  - HEADACHE [None]
  - PAINFUL DEFAECATION [None]
  - SINUS CONGESTION [None]
